FAERS Safety Report 26073079 (Version 2)
Quarter: 2025Q4

REPORT INFORMATION
  Report Type: Spontaneous
  Country: EU (occurrence: EU)
  Receive Date: 20251121
  Receipt Date: 20251216
  Transmission Date: 20260118
  Serious: Yes (Other)
  Sender: AUROBINDO
  Company Number: EU-RDY-POL/2025/10/015907

PATIENT
  Age: 72 Year
  Sex: Male

DRUGS (2)
  1. PREGABALIN [Suspect]
     Active Substance: PREGABALIN
     Indication: Generalised anxiety disorder
     Dosage: 25 MILLIGRAM (AT NIGHT)
     Route: 065
  2. PREGABALIN [Suspect]
     Active Substance: PREGABALIN
     Dosage: 75 MILLIGRAM (INCREASED AFTER 4 DAYS)
     Route: 065

REACTIONS (5)
  - Mental impairment [Recovered/Resolved]
  - Hypoaesthesia [Recovered/Resolved]
  - Confusional state [Recovered/Resolved]
  - Stupor [Recovered/Resolved]
  - Off label use [Unknown]
